FAERS Safety Report 10526016 (Version 1)
Quarter: 2014Q4

REPORT INFORMATION
  Report Type: Spontaneous
  Country: US (occurrence: US)
  Receive Date: 20141017
  Receipt Date: 20141017
  Transmission Date: 20150528
  Serious: Yes (Other)
  Sender: FDA-Public Use
  Company Number: US-LUNDBECK-DKLU1094025

PATIENT
  Sex: Male

DRUGS (4)
  1. SABRIL [Suspect]
     Active Substance: VIGABATRIN
     Dates: start: 20130925
  2. SABRIL [Suspect]
     Active Substance: VIGABATRIN
     Indication: INFANTILE SPASMS
     Dates: start: 20130925
  3. SABRIL [Suspect]
     Active Substance: VIGABATRIN
     Dates: start: 20130925
  4. SABRIL [Suspect]
     Active Substance: VIGABATRIN

REACTIONS (3)
  - Seizure [Recovered/Resolved]
  - Insomnia [Unknown]
  - Crying [Recovered/Resolved]
